FAERS Safety Report 6466744-5 (Version None)
Quarter: 2009Q4

REPORT INFORMATION
  Report Type: 
  Country: None (occurrence: None)
  Receive Date: 20091202
  Receipt Date: 20091123
  Transmission Date: 20100525
  Serious: Yes (Other)
  Sender: FDA-Public Use
  Company Number: BR-TEVA-216161USA

PATIENT
  Sex: Male

DRUGS (2)
  1. PIMOZIDE TABLETS [Suspect]
  2. SERTRALINE HYDROCHLORIDE [Suspect]
     Indication: ANTIDEPRESSANT THERAPY

REACTIONS (4)
  - DRUG INTERACTION [None]
  - DRUG PRESCRIBING ERROR [None]
  - MOVEMENT DISORDER [None]
  - PRODUCT QUALITY ISSUE [None]
